FAERS Safety Report 7112647-2 (Version None)
Quarter: 2010Q4

REPORT INFORMATION
  Report Type: 
  Country: None (occurrence: None)
  Receive Date: 20101119
  Receipt Date: 20101109
  Transmission Date: 20110411
  Serious: Yes (Hospitalization, Other)
  Sender: FDA-Public Use
  Company Number: US-JNJFOC-20101104370

PATIENT
  Sex: Male
  Weight: 129.28 kg

DRUGS (5)
  1. FENTANYL-100 [Suspect]
     Indication: ARTHRALGIA
     Route: 062
  2. FENTANYL-100 [Suspect]
     Indication: PAIN
     Route: 062
  3. FENTANYL-100 [Suspect]
     Dosage: NDC#0781-7244-55
     Route: 062
  4. OXYCONTIN [Suspect]
     Indication: PRODUCT USED FOR UNKNOWN INDICATION
     Route: 065
  5. MANY OTHER UNSPECIFIED MEDICATIONS [Concomitant]
     Indication: UNEVALUABLE EVENT
     Route: 065

REACTIONS (5)
  - ARTHROPATHY [None]
  - DRUG ADMINISTERED AT INAPPROPRIATE SITE [None]
  - KNEE ARTHROPLASTY [None]
  - PRODUCT ADHESION ISSUE [None]
  - WRONG TECHNIQUE IN DRUG USAGE PROCESS [None]
